FAERS Safety Report 10202443 (Version 2)
Quarter: 2014Q2

REPORT INFORMATION
  Report Type: Spontaneous
  Country: PK (occurrence: PK)
  Receive Date: 20140528
  Receipt Date: 20140612
  Transmission Date: 20141212
  Serious: Yes (Disabling)
  Sender: FDA-Public Use
  Company Number: PK-SA-2014SA065913

PATIENT
  Age: 34 Year
  Sex: Female

DRUGS (2)
  1. TAXOTERE [Suspect]
     Indication: BREAST CANCER
     Dosage: FREQUENCY:OD,ROUTE:INFUSION
     Dates: start: 20140314, end: 20140314
  2. CYCLOPHOSPHAMIDE [Concomitant]

REACTIONS (3)
  - Menorrhagia [Recovered/Resolved]
  - Rash generalised [Recovered/Resolved]
  - Mucosal inflammation [Recovered/Resolved]
